FAERS Safety Report 18032825 (Version 1)
Quarter: 2020Q3

REPORT INFORMATION
  Report Type: Spontaneous
  Country: US (occurrence: US)
  Receive Date: 20200716
  Receipt Date: 20200716
  Transmission Date: 20201103
  Serious: No
  Sender: FDA-Public Use
  Company Number: US-AERIE-US-2020-001530

PATIENT

DRUGS (3)
  1. COMBIGAN [Concomitant]
     Active Substance: BRIMONIDINE TARTRATE\TIMOLOL MALEATE
     Indication: GLAUCOMA
     Dosage: 2 GTT DROPS, BID
     Route: 047
  2. RHOPRESSA [Suspect]
     Active Substance: NETARSUDIL MESYLATE
     Indication: GLAUCOMA
     Dosage: 1 GTT DROPS, QHS
     Route: 047
     Dates: start: 20190819, end: 20200206
  3. LATANOPROST. [Concomitant]
     Active Substance: LATANOPROST
     Indication: GLAUCOMA
     Dosage: 2 GTT DROPS, QHS
     Route: 047

REACTIONS (4)
  - Eye pruritus [Recovered/Resolved]
  - Lacrimation increased [Recovered/Resolved]
  - Foreign body sensation in eyes [Recovered/Resolved]
  - Conjunctival hyperaemia [Recovered/Resolved]

NARRATIVE: CASE EVENT DATE: 202001
